FAERS Safety Report 12000965 (Version 1)
Quarter: 2016Q1

REPORT INFORMATION
  Report Type: Spontaneous
  Country: US (occurrence: US)
  Receive Date: 20160204
  Receipt Date: 20160204
  Transmission Date: 20160526
  Serious: No
  Sender: FDA-Public Use
  Company Number: US-GLAXOSMITHKLINE-US2016010509

PATIENT
  Age: 53 Year
  Sex: Male

DRUGS (6)
  1. TAMSULOSIN [Concomitant]
     Active Substance: TAMSULOSIN
  2. VENTOLIN HFA [Suspect]
     Active Substance: ALBUTEROL SULFATE
     Dosage: UNK UNK, PRN (STOPPED TAKING IT REGULARLY)
  3. MONTELUKAST [Concomitant]
     Active Substance: MONTELUKAST SODIUM
  4. LORATADINE. [Concomitant]
     Active Substance: LORATADINE
  5. VENTOLIN HFA [Suspect]
     Active Substance: ALBUTEROL SULFATE
     Indication: LOWER RESPIRATORY TRACT CONGESTION
     Dosage: 2 PUFF(S), TID (FOR A COUPLE OF WEEKS)
     Route: 055
     Dates: start: 20151217
  6. ATORVASTATIN [Concomitant]
     Active Substance: ATORVASTATIN

REACTIONS (3)
  - Dizziness [Unknown]
  - Dysphonia [Not Recovered/Not Resolved]
  - Drug ineffective [Unknown]

NARRATIVE: CASE EVENT DATE: 201601
